FAERS Safety Report 21188813 (Version 1)
Quarter: 2022Q3

REPORT INFORMATION
  Report Type: Spontaneous
  Country: US (occurrence: US)
  Receive Date: 20220809
  Receipt Date: 20220809
  Transmission Date: 20221027
  Serious: Yes (Other)
  Sender: FDA-Public Use
  Company Number: US-AUROBINDO-AUR-APL-2022-030801

PATIENT
  Age: 34 Year
  Sex: Male

DRUGS (1)
  1. TRIAMCINOLONE ACETONIDE [Suspect]
     Active Substance: TRIAMCINOLONE ACETONIDE
     Indication: Anaesthesia procedure
     Dosage: NASAL MUCOSA INTRA-OPERATIVELY
     Route: 065

REACTIONS (2)
  - Retinal vascular occlusion [Unknown]
  - Vascular occlusion [Unknown]
